FAERS Safety Report 7393127-6 (Version None)
Quarter: 2011Q2

REPORT INFORMATION
  Report Type: 
  Country: None (occurrence: None)
  Receive Date: 20110404
  Receipt Date: 20110328
  Transmission Date: 20111010
  Serious: Yes (Other)
  Sender: FDA-Public Use
  Company Number: US-ALLERGAN-1104364US

PATIENT
  Age: 46 Year
  Sex: Female

DRUGS (3)
  1. LISINOPRIL [Concomitant]
     Indication: PRODUCT USED FOR UNKNOWN INDICATION
  2. BOTOX COSMETIC [Suspect]
     Indication: SKIN WRINKLING
     Dosage: 40 UNITS, SINGLE
     Dates: start: 20110325, end: 20110325
  3. JUVEDERM [Suspect]
     Indication: SKIN WRINKLING

REACTIONS (3)
  - CHAPPED LIPS [None]
  - SWELLING FACE [None]
  - LIP HAEMORRHAGE [None]
